FAERS Safety Report 7591470-9 (Version None)
Quarter: 2011Q3

REPORT INFORMATION
  Report Type: 
  Country: None (occurrence: None)
  Receive Date: 20110701
  Receipt Date: 20110701
  Transmission Date: 20111222
  Serious: Yes (Other)
  Sender: FDA-Public Use
  Company Number: None

PATIENT
  Age: 45 Year
  Sex: Female
  Weight: 73.9363 kg

DRUGS (1)
  1. ZYRTEC [Suspect]
     Indication: MULTIPLE ALLERGIES
     Dosage: 1 PILL 24 HOURS PO
     Route: 048
     Dates: start: 20100814, end: 20110626

REACTIONS (2)
  - PRURITUS GENERALISED [None]
  - WITHDRAWAL SYNDROME [None]
